FAERS Safety Report 4890501-4 (Version None)
Quarter: 2006Q1

REPORT INFORMATION
  Report Type: 
  Country: None (occurrence: None)
  Receive Date: 20060123
  Receipt Date: 20060123
  Transmission Date: 20060701
  Serious: Yes (Hospitalization, Other)
  Sender: FDA-Public Use
  Company Number: None

PATIENT
  Sex: Female
  Weight: 49 kg

DRUGS (4)
  1. FLUOROURACIL [Suspect]
     Indication: COLORECTAL CANCER
     Dosage: SEE IMAGE
     Route: 042
     Dates: start: 20060104, end: 20060104
  2. BEVACIZUMAB [Suspect]
     Dosage: SEE IMAGE
     Dates: start: 20060104, end: 20060104
  3. LEUCOVORIN CALCIUM [Suspect]
     Dosage: SEE IMAGE
     Dates: start: 20060104, end: 20060104
  4. ELOXATIN [Suspect]
     Dosage: SEE IMAGE
     Dates: start: 20060104, end: 20060104

REACTIONS (5)
  - CATHETER RELATED COMPLICATION [None]
  - DIARRHOEA [None]
  - NAUSEA [None]
  - PYREXIA [None]
  - VOMITING [None]
